FAERS Safety Report 23198246 (Version 1)
Quarter: 2023Q4

REPORT INFORMATION
  Report Type: Other
  Country: CA (occurrence: CA)
  Receive Date: 20231117
  Receipt Date: 20231117
  Transmission Date: 20240110
  Serious: Yes (Other)
  Sender: FDA-Public Use
  Company Number: CA-PFIZER INC-202300367642

PATIENT
  Age: 69 Year
  Sex: Male

DRUGS (19)
  1. OXALIPLATIN [Suspect]
     Active Substance: OXALIPLATIN
     Indication: Panniculitis
     Dosage: 65.0 MG/M2, CYCLICAL
  2. OXALIPLATIN [Suspect]
     Active Substance: OXALIPLATIN
     Indication: Pancreatic carcinoma metastatic
     Dosage: 65.0 MG/M2, CYCLICAL
  3. OXALIPLATIN [Suspect]
     Active Substance: OXALIPLATIN
     Dosage: 65.0 MG/M2, CYCLICAL
  4. IRINOTECAN HYDROCHLORIDE [Suspect]
     Active Substance: IRINOTECAN HYDROCHLORIDE
     Indication: Panniculitis
     Dosage: 120.0 MG/M2, CYCLICAL
  5. IRINOTECAN HYDROCHLORIDE [Suspect]
     Active Substance: IRINOTECAN HYDROCHLORIDE
     Indication: Pancreatic carcinoma metastatic
     Dosage: 120.0 MG/M2, CYCLICAL
  6. IRINOTECAN HYDROCHLORIDE [Suspect]
     Active Substance: IRINOTECAN HYDROCHLORIDE
     Dosage: 120.0 MG/M2, CYCLICAL
     Route: 042
  7. LEUCOVORIN CALCIUM [Suspect]
     Active Substance: LEUCOVORIN CALCIUM
     Indication: Panniculitis
     Dosage: 400 MG/M2, CYCLICAL
  8. LEUCOVORIN CALCIUM [Suspect]
     Active Substance: LEUCOVORIN CALCIUM
     Indication: Pancreatic carcinoma metastatic
     Dosage: 400 MG/M2, CYCLICAL
  9. LEUCOVORIN CALCIUM [Suspect]
     Active Substance: LEUCOVORIN CALCIUM
     Dosage: 400 MG/M2, CYCLICAL
  10. FLUOROURACIL [Suspect]
     Active Substance: FLUOROURACIL
     Indication: Panniculitis
     Dosage: 4200.0 MG/M2, CYCLICAL
  11. FLUOROURACIL [Suspect]
     Active Substance: FLUOROURACIL
     Indication: Pancreatic carcinoma metastatic
     Dosage: 4200.0 MG/M2, CYCLICAL
  12. FLUOROURACIL [Suspect]
     Active Substance: FLUOROURACIL
     Dosage: 4200.0 MG/M2, CYCLICAL
     Route: 042
  13. DEXAMETHASONE [Concomitant]
     Active Substance: DEXAMETHASONE
     Route: 065
  14. NAPROXEN [Concomitant]
     Active Substance: NAPROXEN
     Indication: Seronegative arthritis
  15. NAPROXEN [Concomitant]
     Active Substance: NAPROXEN
     Indication: Gout
  16. NAPROXEN [Concomitant]
     Active Substance: NAPROXEN
     Indication: Arthritis
  17. PREDNISOLONE [Concomitant]
     Active Substance: PREDNISOLONE
     Indication: Seronegative arthritis
     Dosage: 15 MG
  18. PREDNISOLONE [Concomitant]
     Active Substance: PREDNISOLONE
     Indication: Gout
     Dosage: UNK
  19. PREDNISOLONE [Concomitant]
     Active Substance: PREDNISOLONE
     Indication: Arthritis
     Dosage: UNK

REACTIONS (2)
  - Peripheral sensory neuropathy [Recovered/Resolved]
  - Off label use [Unknown]
